FAERS Safety Report 4518999-1 (Version None)
Quarter: 2004Q4

REPORT INFORMATION
  Report Type: 
  Country: None (occurrence: None)
  Receive Date: 20041201
  Receipt Date: 20041119
  Transmission Date: 20050328
  Serious: Yes (Other)
  Sender: FDA-Public Use
  Company Number: 2004US001435

PATIENT
  Sex: 0

DRUGS (1)
  1. ADENOSCAN [Suspect]
     Indication: SCAN MYOCARDIAL PERFUSION
     Dosage: 140.00 RK/MIN, TOTAL DOSE, INTRAVENOUS
     Route: 042
     Dates: start: 20041109, end: 20041109

REACTIONS (5)
  - BRONCHOSPASM [None]
  - BRUXISM [None]
  - DYSPNOEA [None]
  - LOSS OF CONSCIOUSNESS [None]
  - RESPIRATORY ARREST [None]
